FAERS Safety Report 20789295 (Version 1)
Quarter: 2022Q2

REPORT INFORMATION
  Report Type: Spontaneous
  Country: US (occurrence: None)
  Receive Date: 20220504
  Receipt Date: 20220504
  Transmission Date: 20220721
  Serious: Yes (Hospitalization)
  Sender: FDA-Public Use
  Company Number: None

PATIENT
  Age: 55 Year
  Sex: Male

DRUGS (1)
  1. CAPECITABINE [Suspect]
     Active Substance: CAPECITABINE
     Dosage: 1500MG  BID ORAL?
     Route: 048
     Dates: start: 202205

REACTIONS (2)
  - Pain [None]
  - Paraesthesia [None]

NARRATIVE: CASE EVENT DATE: 20220502
